FAERS Safety Report 4453041-2 (Version None)
Quarter: 2004Q3

REPORT INFORMATION
  Report Type: 
  Country: None (occurrence: None)
  Receive Date: 20040916
  Receipt Date: 20040916
  Transmission Date: 20050211
  Serious: Yes (Other)
  Sender: FDA-Public Use
  Company Number: None

PATIENT
  Age: 43 Year
  Sex: Female
  Weight: 128 kg

DRUGS (8)
  1. AVANDIA [Suspect]
     Indication: DIABETES MELLITUS NON-INSULIN-DEPENDENT
     Dosage: 4 MG DAILY ORAL/ 2 MG ORALLY
     Route: 048
     Dates: start: 20040720, end: 20040724
  2. GLUCOPHAGE [Concomitant]
  3. PRAVACHOL [Concomitant]
  4. ASPIRIN 8 [Concomitant]
  5. BLACK COHOSH [Concomitant]
  6. ZYRTEC [Concomitant]
  7. MAGNESIUM SUPPLEMENT [Concomitant]
  8. CHROMIUM SUPPLEMENT [Concomitant]

REACTIONS (3)
  - BRONCHITIS [None]
  - COUGH [None]
  - PULMONARY CONGESTION [None]
